FAERS Safety Report 13669887 (Version 1)
Quarter: 2017Q2

REPORT INFORMATION
  Report Type: Spontaneous
  Country: US (occurrence: US)
  Receive Date: 20170620
  Receipt Date: 20170620
  Transmission Date: 20170830
  Serious: Yes (Hospitalization, Other)
  Sender: FDA-Public Use
  Company Number: US-APOPHARMA USA, INC.-2017AP012680

PATIENT
  Sex: Female
  Weight: 9.6 kg

DRUGS (8)
  1. HEPARIN [Concomitant]
     Active Substance: HEPARIN SODIUM
     Indication: ANTICOAGULANT THERAPY
     Dosage: UNK UNK, UNKNOWN
     Route: 042
  2. TOPOTECAN [Concomitant]
     Active Substance: TOPOTECAN HYDROCHLORIDE
     Indication: RETINOBLASTOMA
     Dosage: UNK, OTHER
     Route: 013
  3. AFRIN [Concomitant]
     Active Substance: OXYMETAZOLINE
     Indication: VASOCONSTRICTION
     Dosage: UNK, UNKNOWN
     Route: 045
  4. NITROGLYCERIN. [Concomitant]
     Active Substance: NITROGLYCERIN
     Indication: VASOSPASM
     Dosage: UNK UNK, UNKNOWN
     Route: 065
  5. ALKERAN [Suspect]
     Active Substance: MELPHALAN
     Indication: RETINOBLASTOMA
     Dosage: UNK, OTHER
     Route: 013
  6. CARBOPLATIN. [Concomitant]
     Active Substance: CARBOPLATIN
     Indication: CONGENITAL RETINOBLASTOMA
     Dosage: UNK, OTHER
     Route: 013
  7. PHENYLEPHRINE [Concomitant]
     Active Substance: PHENYLEPHRINE\PHENYLEPHRINE HYDROCHLORIDE
     Indication: VASOCONSTRICTION
     Dosage: UNK, UNKNOWN
     Route: 061
  8. ALKERAN [Suspect]
     Active Substance: MELPHALAN
     Indication: NEOPLASM RECURRENCE
     Dosage: 20 ?G, UNKNOWN
     Route: 050

REACTIONS (5)
  - Madarosis [Recovered/Resolved]
  - Vitreous haemorrhage [Recovered/Resolved]
  - Febrile neutropenia [Unknown]
  - Neutropenia [Unknown]
  - Neoplasm recurrence [Recovered/Resolved]
